FAERS Safety Report 7181870-3 (Version None)
Quarter: 2010Q4

REPORT INFORMATION
  Report Type: 
  Country: None (occurrence: None)
  Receive Date: 20101221
  Receipt Date: 20100503
  Transmission Date: 20110411
  Serious: No
  Sender: FDA-Public Use
  Company Number: US-AMGEN-KDL409172

PATIENT

DRUGS (6)
  1. ENBREL [Suspect]
     Indication: PSORIASIS
     Dosage: 50 MG, 2 TIMES/WK
     Route: 058
     Dates: start: 20100219
  2. ALPRAZOLAM [Concomitant]
  3. BUPROPION [Concomitant]
  4. GLIPIZIDE [Concomitant]
  5. ESCITALOPRAM [Concomitant]
  6. VERAPAMIL [Concomitant]

REACTIONS (2)
  - DRY MOUTH [None]
  - SNORING [None]
